FAERS Safety Report 7336349-2 (Version None)
Quarter: 2011Q1

REPORT INFORMATION
  Report Type: 
  Country: None (occurrence: None)
  Receive Date: 20110307
  Receipt Date: 20110223
  Transmission Date: 20110831
  Serious: Yes (Hospitalization)
  Sender: FDA-Public Use
  Company Number: AU-WATSON-2011-02406

PATIENT
  Age: 49 Year
  Sex: Male

DRUGS (4)
  1. VALACYCLOVIR HCL (WATSON  LABORATORIES) [Suspect]
     Indication: PRODUCT USED FOR UNKNOWN INDICATION
     Dosage: 500 MG, BID
  2. ALCOHOL                            /00002101/ [Suspect]
     Indication: PRODUCT USED FOR UNKNOWN INDICATION
     Dosage: UNK
  3. VENLAFAXINE [Suspect]
     Indication: PRODUCT USED FOR UNKNOWN INDICATION
     Dosage: UNK
  4. OLANZAPINE [Suspect]
     Indication: PRODUCT USED FOR UNKNOWN INDICATION
     Dosage: UNK

REACTIONS (8)
  - RENAL FAILURE ACUTE [None]
  - THROMBOCYTOPENIA [None]
  - HYPOTENSION [None]
  - TACHYCARDIA [None]
  - OVERDOSE [None]
  - CRYSTALLURIA [None]
  - SEDATION [None]
  - LACTIC ACIDOSIS [None]
